FAERS Safety Report 8365576-0 (Version None)
Quarter: 2012Q2

REPORT INFORMATION
  Report Type: 
  Country: None (occurrence: None)
  Receive Date: 20120516
  Receipt Date: 20120502
  Transmission Date: 20120825
  Serious: Yes (Disabling)
  Sender: FDA-Public Use
  Company Number: US-ROCHE-1065299

PATIENT
  Sex: Female
  Weight: 74.91 kg

DRUGS (7)
  1. BONIVA [Suspect]
     Indication: PRODUCT USED FOR UNKNOWN INDICATION
  2. FOSAMAX [Suspect]
     Indication: PRODUCT USED FOR UNKNOWN INDICATION
  3. TRIAMTERENE AND HYDROCHLOROTHIAZIDE [Concomitant]
     Indication: HYPERTENSION
     Dosage: DOSE: 75/50 MG
  4. POTASSIUM CHLORIDE [Concomitant]
     Dosage: FORM: EXTENDED RELEASE
     Route: 048
  5. METFORMIN HCL [Concomitant]
  6. VYTORIN [Concomitant]
     Indication: BLOOD CHOLESTEROL INCREASED
     Dosage: DOSE: 10/40 MG
  7. METFORMIN HCL [Concomitant]
     Indication: DIABETES MELLITUS

REACTIONS (4)
  - MALAISE [None]
  - SENSORY DISTURBANCE [None]
  - MOVEMENT DISORDER [None]
  - MUSCLE DISORDER [None]
